FAERS Safety Report 9189946 (Version 1)
Quarter: 2013Q1

REPORT INFORMATION
  Report Type: Spontaneous
  Country: US (occurrence: None)
  Receive Date: 20130322
  Receipt Date: 20130322
  Transmission Date: 20140127
  Serious: Yes (Other)
  Sender: FDA-Public Use
  Company Number: None

PATIENT
  Age: 70 Year
  Sex: Female
  Weight: 79 kg

DRUGS (9)
  1. XARELTO [Suspect]
     Indication: ATRIAL FIBRILLATION
     Route: 048
     Dates: start: 20130314, end: 20130321
  2. XARELTO [Suspect]
     Indication: CEREBROVASCULAR ACCIDENT PROPHYLAXIS
     Route: 048
     Dates: start: 20130314, end: 20130321
  3. AMIODARONE [Concomitant]
  4. LIPITOR [Concomitant]
  5. BIAXIN [Concomitant]
  6. HCTZ [Concomitant]
  7. OMEPRAZOLE [Concomitant]
  8. PREMARIN [Concomitant]
  9. ACETAMINOPHEN [Concomitant]

REACTIONS (1)
  - Pruritus [None]
